FAERS Safety Report 22310776 (Version 1)
Quarter: 2023Q2

REPORT INFORMATION
  Report Type: Spontaneous
  Country: DE (occurrence: DE)
  Receive Date: 20230511
  Receipt Date: 20230511
  Transmission Date: 20230722
  Serious: Yes (Other)
  Sender: FDA-Public Use
  Company Number: None

PATIENT
  Sex: Female
  Weight: 65 kg

DRUGS (2)
  1. SELPERCATINIB [Suspect]
     Active Substance: SELPERCATINIB
     Indication: Medullary thyroid cancer
     Dosage: 40 MG, BID
     Route: 048
     Dates: start: 20230417
  2. SELPERCATINIB [Suspect]
     Active Substance: SELPERCATINIB
     Indication: Metastasis
     Dosage: 160 MG, DAILY
     Route: 048
     Dates: start: 20230116

REACTIONS (1)
  - Papilloedema [Not Recovered/Not Resolved]
